FAERS Safety Report 25943117 (Version 1)
Quarter: 2025Q4

REPORT INFORMATION
  Report Type: Spontaneous
  Country: US (occurrence: None)
  Receive Date: 20251020
  Receipt Date: 20251020
  Transmission Date: 20260117
  Serious: No
  Sender: FDA-CTU
  Company Number: None

PATIENT
  Sex: Female

DRUGS (1)
  1. WEGOVY [Suspect]
     Active Substance: SEMAGLUTIDE

REACTIONS (3)
  - Musculoskeletal stiffness [None]
  - Muscle twitching [None]
  - Myalgia [None]

NARRATIVE: CASE EVENT DATE: 20251020
